FAERS Safety Report 22593112 (Version 1)
Quarter: 2023Q2

REPORT INFORMATION
  Report Type: Spontaneous
  Country: IR (occurrence: None)
  Receive Date: 20230613
  Receipt Date: 20230613
  Transmission Date: 20230722
  Serious: Yes (Hospitalization, Other)
  Sender: FDA-Public Use
  Company Number: IR-MICRO LABS LIMITED-ML2023-03127

PATIENT
  Age: 24 Year
  Sex: Female

DRUGS (6)
  1. DALFAMPRIDINE [Suspect]
     Active Substance: DALFAMPRIDINE
     Indication: Multiple sclerosis
  2. DALFAMPRIDINE [Suspect]
     Active Substance: DALFAMPRIDINE
  3. VALPROATE SODIUM [Concomitant]
     Active Substance: VALPROATE SODIUM
     Indication: Affective disorder
  4. DIMETHYL FUMARATE [Concomitant]
     Active Substance: DIMETHYL FUMARATE
     Indication: Multiple sclerosis
  5. OLANZAPINE [Concomitant]
     Active Substance: OLANZAPINE
     Indication: Affective disorder
  6. CLONAZEPAM [Concomitant]
     Active Substance: CLONAZEPAM
     Indication: Affective disorder

REACTIONS (6)
  - Delirium [Recovered/Resolved]
  - Status epilepticus [Recovered/Resolved]
  - Hyperhidrosis [Recovered/Resolved]
  - Toxicity to various agents [Recovered/Resolved]
  - Suicide attempt [Recovered/Resolved]
  - Overdose [Unknown]
